FAERS Safety Report 4283158-7 (Version None)
Quarter: 2004Q1

REPORT INFORMATION
  Report Type: 
  Country: None (occurrence: None)
  Receive Date: 20040121
  Receipt Date: 20031210
  Transmission Date: 20041129
  Serious: Yes (Death, Other)
  Sender: FDA-Public Use
  Company Number: 2003SA000175

PATIENT
  Age: 58 Year
  Sex: Male

DRUGS (4)
  1. THYMOGLOBULIN [Suspect]
     Indication: PROPHYLAXIS AGAINST TRANSPLANT REJECTION
     Dosage: 170 MG; X1; INTRAVENOUS
     Route: 042
     Dates: start: 20031116, end: 20031116
  2. DEXAMETHASONE [Concomitant]
  3. CELLCEPT` [Concomitant]
  4. MORPHINE [Concomitant]

REACTIONS (9)
  - APNOEA [None]
  - CARDIAC ARREST [None]
  - CARDIOMEGALY [None]
  - CORONARY ARTERY ATHEROSCLEROSIS [None]
  - HEPATOMEGALY [None]
  - MEDICATION ERROR [None]
  - PULMONARY OEDEMA [None]
  - RENAL FAILURE CHRONIC [None]
  - SPLENOMEGALY [None]
